FAERS Safety Report 6759798-X (Version None)
Quarter: 2010Q2

REPORT INFORMATION
  Report Type: 
  Country: None (occurrence: None)
  Receive Date: 20100604
  Receipt Date: 20100520
  Transmission Date: 20101027
  Serious: Yes (Hospitalization)
  Sender: FDA-Public Use
  Company Number: 2009002931

PATIENT
  Age: 73 Year
  Sex: Male

DRUGS (7)
  1. ERLOTINIB (ERLOTINIB) (TABLET) (ERLOTINIB) [Suspect]
     Indication: NON-SMALL CELL LUNG CANCER
     Dosage: 150 MG, QD, ORAL
     Route: 048
     Dates: start: 20090720, end: 20090720
  2. CP-751, 871 (INJECTION FOR INFUSION) [Suspect]
     Indication: NON-SMALL CELL LUNG CANCER
     Dosage: 1764 MG, EVERY 3 WEEKS, INTRAVENOUS
     Route: 042
     Dates: start: 20090720, end: 20090720
  3. LANSOPRAZOLE [Concomitant]
  4. PARACETAMOL (PARACETAMOL) [Concomitant]
  5. BIMATOPROST [Concomitant]
  6. SALBUTAMOL (SALBUTAMOL) [Concomitant]
  7. ORAMORPH SR [Concomitant]

REACTIONS (7)
  - ASTHENIA [None]
  - CONFUSIONAL STATE [None]
  - DECREASED APPETITE [None]
  - DEHYDRATION [None]
  - DIARRHOEA [None]
  - FATIGUE [None]
  - HYPERCALCAEMIA [None]
